FAERS Safety Report 7649760 (Version 4)
Quarter: 2016Q2

REPORT INFORMATION
  Report Type: Report from Study
  Country: DE (occurrence: DE)
  Receive Date: 20101029
  Receipt Date: 20160502
  Transmission Date: 20160815
  Serious: Yes (Death, Hospitalization)
  Sender: FDA-Public Use
  Company Number: DE-ROCHE-737071

PATIENT
  Age: 47 Year
  Sex: Female
  Weight: 76 kg

DRUGS (14)
  1. METOHEXAL [Concomitant]
     Active Substance: METOPROLOL SUCCINATE
     Route: 065
  2. PREDNISOLON [Suspect]
     Active Substance: PREDNISOLONE
     Indication: PSORIATIC ARTHROPATHY
     Route: 048
  3. HYDROCHLOROTHIAZIDE. [Concomitant]
     Active Substance: HYDROCHLOROTHIAZIDE
     Route: 065
  4. APROVEL [Concomitant]
     Active Substance: IRBESARTAN
     Route: 065
  5. RAMIPRIL. [Concomitant]
     Active Substance: RAMIPRIL
  6. TOCILIZUMAB [Suspect]
     Active Substance: TOCILIZUMAB
     Indication: PSORIATIC ARTHROPATHY
     Dosage: 560 MG ALSO GIVEN ON 19 AUG 2010 AND 09 SEP 2010
     Route: 042
     Dates: start: 20100721, end: 20101010
  7. ASPIRIN. [Concomitant]
     Active Substance: ASPIRIN
     Route: 065
  8. METHOTREXATE (METHOTREXATE SODIUM) [Concomitant]
     Active Substance: METHOTREXATE SODIUM
     Indication: PSORIATIC ARTHROPATHY
     Route: 065
  9. PANTOPRAZOL [Concomitant]
     Active Substance: PANTOPRAZOLE SODIUM
     Route: 065
  10. JODID 200 [Concomitant]
     Route: 065
  11. NOVORAPID [Concomitant]
     Active Substance: INSULIN ASPART
  12. FOLIC ACID. [Concomitant]
     Active Substance: FOLIC ACID
  13. TORASEMIDE [Concomitant]
     Active Substance: TORSEMIDE
     Route: 065
  14. LEVEMIR [Concomitant]
     Active Substance: INSULIN DETEMIR

REACTIONS (7)
  - Pneumocystis jirovecii pneumonia [Fatal]
  - Pulmonary congestion [Fatal]
  - Respiratory failure [Fatal]
  - Sepsis [Fatal]
  - Acute respiratory distress syndrome [Fatal]
  - Multiple organ dysfunction syndrome [Fatal]
  - Respiratory failure [Not Recovered/Not Resolved]

NARRATIVE: CASE EVENT DATE: 20100901
